FAERS Safety Report 8257975-2 (Version None)
Quarter: 2012Q2

REPORT INFORMATION
  Report Type: 
  Country: None (occurrence: None)
  Receive Date: 20120404
  Receipt Date: 20120327
  Transmission Date: 20120825
  Serious: Yes (Hospitalization)
  Sender: FDA-Public Use
  Company Number: US-BAYER-2011-096028

PATIENT
  Age: 30 Year
  Sex: Female
  Weight: 140.59 kg

DRUGS (6)
  1. VITAMIN AND MINERAL PRENATAL SUPPLEMENT W/ FOLIC ACID CAP [Concomitant]
     Dosage: UNK UNK, QD
     Route: 048
  2. METFORMIN HCL [Concomitant]
     Dosage: 500 MG, BID
     Route: 048
  3. YAZ [Suspect]
     Indication: ACNE
     Dosage: UNK
     Dates: start: 20080709, end: 20081024
  4. GLUCOPHAGE XR [Concomitant]
     Dosage: 500 MG, BID
     Route: 048
  5. ULTRAM [Concomitant]
     Dosage: 50 MG, PRN
     Route: 048
  6. YASMIN [Suspect]
     Indication: ACNE
     Dosage: UNK
     Dates: start: 20080709, end: 20081024

REACTIONS (7)
  - PAIN [None]
  - ANXIETY [None]
  - SCAR [None]
  - GALLBLADDER INJURY [None]
  - CHOLECYSTITIS CHRONIC [None]
  - EMOTIONAL DISTRESS [None]
  - GENERAL PHYSICAL HEALTH DETERIORATION [None]
